FAERS Safety Report 12769127 (Version 9)
Quarter: 2017Q1

REPORT INFORMATION
  Report Type: Report from Study
  Country: None (occurrence: BE)
  Receive Date: 20160921
  Receipt Date: 20170321
  Transmission Date: 20170428
  Serious: Yes (Hospitalization)
  Sender: FDA-Public Use
  Company Number: BE-ABBVIE-16P-013-1646289-00

PATIENT
  Sex: Female

DRUGS (17)
  1. DUODOPA [Suspect]
     Active Substance: CARBIDOPA\LEVODOPA
     Indication: PARKINSON^S DISEASE
     Dosage: AM=1ML;CD=2.0 ML/HR DURING 16HRS ;ED=1.1ML;ND=1.6ML/HR DURING 8HRS
     Route: 050
     Dates: start: 20160530, end: 20160603
  2. DUODOPA [Suspect]
     Active Substance: CARBIDOPA\LEVODOPA
     Dosage: AM=3.2MLCD=1.9ML/HR DURING 16HRSED=1.1ML
     Route: 050
     Dates: start: 20160616, end: 20160622
  3. DUODOPA [Suspect]
     Active Substance: CARBIDOPA\LEVODOPA
     Dosage: AM=1.1ML, CD=1.7ML/HR DURING 16HRS, ED=1.1ML
     Route: 050
     Dates: start: 20160801, end: 20160802
  4. DUODOPA [Suspect]
     Active Substance: CARBIDOPA\LEVODOPA
     Dosage: AM=2ML, CD=1.7ML/HR DURING 16HRS, ED=1.1ML
     Route: 050
     Dates: start: 20160802, end: 20160803
  5. PROLOPA HBS [Concomitant]
     Active Substance: BENSERAZIDE\LEVODOPA
     Dates: start: 20160701
  6. DUODOPA [Suspect]
     Active Substance: CARBIDOPA\LEVODOPA
     Dosage: AM=2ML, CD=1.8ML/HR DURING 16HRS, ED=1.1ML
     Route: 050
     Dates: start: 20160803, end: 20170110
  7. NEXIAM [Concomitant]
     Active Substance: ESOMEPRAZOLE
     Indication: PRODUCT USED FOR UNKNOWN INDICATION
  8. DUODOPA [Suspect]
     Active Substance: CARBIDOPA\LEVODOPA
     Dosage: AM=3.2MLCD=1.8ML/HR DURING 16HRSED=1.1ML
     Route: 050
     Dates: start: 20160622, end: 20160628
  9. DUODOPA [Suspect]
     Active Substance: CARBIDOPA\LEVODOPA
     Dosage: AM = 0 ML; CD = 1.5 ML/H DURING 16 HRS; ED = 1.1 ML
     Route: 050
     Dates: start: 20170126
  10. PROLOPA HBS [Concomitant]
     Active Substance: BENSERAZIDE\LEVODOPA
     Indication: PRODUCT USED FOR UNKNOWN INDICATION
     Dosage: WHEN SHUTTING DOWN THE DUODOPA PUMP
     Dates: end: 20160629
  11. DUODOPA [Suspect]
     Active Substance: CARBIDOPA\LEVODOPA
     Route: 050
     Dates: start: 20160603, end: 20160616
  12. FLUDROCORTISONE [Concomitant]
     Active Substance: FLUDROCORTISONE
     Indication: PRODUCT USED FOR UNKNOWN INDICATION
  13. DUODOPA [Suspect]
     Active Substance: CARBIDOPA\LEVODOPA
     Dosage: AM=3.2MLCD=1.7ML/HR DURING 16HRSED=1.1ML
     Route: 050
     Dates: start: 20160628, end: 20160630
  14. DUODOPA [Suspect]
     Active Substance: CARBIDOPA\LEVODOPA
     Dosage: AM=3.2MLCD=1.8ML/HR DURING 16HRSED=1.1ML
     Route: 050
     Dates: start: 20160630, end: 20160801
  15. DUODOPA [Suspect]
     Active Substance: CARBIDOPA\LEVODOPA
     Dosage: AM = 0 ML; CD = 1.7 ML/H DURING 16 HRS; ED = 1.1 ML
     Route: 050
     Dates: start: 20170110, end: 20170126
  16. STEOVIT D3 [Concomitant]
     Active Substance: CALCIUM CARBONATE\CHOLECALCIFEROL
     Indication: PRODUCT USED FOR UNKNOWN INDICATION
  17. OMEPRAZOLE. [Concomitant]
     Active Substance: OMEPRAZOLE
     Indication: PRODUCT USED FOR UNKNOWN INDICATION

REACTIONS (33)
  - Pain in extremity [Unknown]
  - Poor quality sleep [Unknown]
  - Blood pressure decreased [Not Recovered/Not Resolved]
  - Malaise [Unknown]
  - Stoma site inflammation [Recovered/Resolved]
  - Parkinson^s disease [Unknown]
  - Stoma site discharge [Unknown]
  - Stoma site extravasation [Unknown]
  - Mobility decreased [Unknown]
  - Mood altered [Unknown]
  - Gastrointestinal pain [Unknown]
  - Anal sphincter hypertonia [Unknown]
  - On and off phenomenon [Not Recovered/Not Resolved]
  - Device difficult to use [Unknown]
  - Stoma site pain [Recovering/Resolving]
  - Stoma site hypergranulation [Recovered/Resolved]
  - Muscle rigidity [Unknown]
  - Stoma site hypergranulation [Recovering/Resolving]
  - Freezing phenomenon [Unknown]
  - Defaecation urgency [Not Recovered/Not Resolved]
  - Anal sphincter hypertonia [Not Recovered/Not Resolved]
  - Restlessness [Unknown]
  - Decreased appetite [Unknown]
  - Diarrhoea [Unknown]
  - Nausea [Unknown]
  - Dyskinesia [Not Recovered/Not Resolved]
  - Constipation [Unknown]
  - Abdominal pain [Unknown]
  - Fatigue [Unknown]
  - Stoma site infection [Recovered/Resolved]
  - Stoma site erythema [Unknown]
  - Stoma site infection [Unknown]
  - Constipation [Not Recovered/Not Resolved]

NARRATIVE: CASE EVENT DATE: 2016
